FAERS Safety Report 7775533-0 (Version None)
Quarter: 2011Q3

REPORT INFORMATION
  Report Type: 
  Country: None (occurrence: None)
  Receive Date: 20110921
  Receipt Date: 20110914
  Transmission Date: 20111222
  Serious: Yes (Hospitalization, Other)
  Sender: FDA-Public Use
  Company Number: 2009SP028418

PATIENT
  Age: 23 Year
  Sex: Female
  Weight: 85.7298 kg

DRUGS (6)
  1. CLONAZEPAM [Concomitant]
  2. IBUPROFEN [Concomitant]
  3. HYDROCODONE [Concomitant]
  4. CARISOPRODOL [Concomitant]
  5. LORTAB [Concomitant]
  6. NUVARING [Suspect]
     Indication: CONTRACEPTION
     Dosage: 1 DF; QM
     Dates: start: 20080320, end: 20081123

REACTIONS (17)
  - INFLUENZA LIKE ILLNESS [None]
  - INFECTIOUS MONONUCLEOSIS [None]
  - ARTHRALGIA [None]
  - THROMBOSIS [None]
  - HAEMOPTYSIS [None]
  - PAROTID GLAND ENLARGEMENT [None]
  - LUNG CONSOLIDATION [None]
  - VIRAL INFECTION [None]
  - SIALOADENITIS [None]
  - INJURY [None]
  - ARRHYTHMIA [None]
  - ANXIETY [None]
  - BACK PAIN [None]
  - UPPER RESPIRATORY TRACT INFECTION [None]
  - PNEUMONIA [None]
  - PULMONARY EMBOLISM [None]
  - PLEURAL EFFUSION [None]
